FAERS Safety Report 17834888 (Version 2)
Quarter: 2022Q1

REPORT INFORMATION
  Report Type: Report from Study
  Country: US (occurrence: US)
  Receive Date: 20200528
  Receipt Date: 20220124
  Transmission Date: 20220424
  Serious: No
  Sender: FDA-Public Use
  Company Number: US-NOVARTISTESTPH-NVSC2020US145592

PATIENT
  Age: 45 Year
  Sex: Female

DRUGS (2)
  1. ILARIS [Suspect]
     Active Substance: CANAKINUMAB
     Indication: Muckle-Wells syndrome
     Dosage: 150 MG, Q8WEEKS
     Route: 058
     Dates: start: 20191229
  2. ILARIS [Suspect]
     Active Substance: CANAKINUMAB
     Indication: Cryopyrin associated periodic syndrome
     Route: 058
     Dates: start: 20180312

REACTIONS (2)
  - Inappropriate schedule of product administration [Unknown]
  - COVID-19 [Unknown]

NARRATIVE: CASE EVENT DATE: 20200520
